FAERS Safety Report 4665223-5 (Version None)
Quarter: 2005Q2

REPORT INFORMATION
  Report Type: 
  Country: None (occurrence: None)
  Receive Date: 20050517
  Receipt Date: 20050125
  Transmission Date: 20051028
  Serious: Yes (Other)
  Sender: FDA-Public Use
  Company Number: S05-USA-00376-01

PATIENT
  Age: 78 Year
  Sex: Male

DRUGS (7)
  1. NAMENDA [Suspect]
     Indication: DEMENTIA ALZHEIMER'S TYPE
     Dosage: 5 MG QD PO
     Route: 048
     Dates: start: 20050118, end: 20050125
  2. ARICEPT [Concomitant]
  3. DETROL [Concomitant]
  4. HYTRIN [Concomitant]
  5. FOLTX [Concomitant]
  6. ASPIRIN [Concomitant]
  7. VITAMIN C (VITAMIN C) [Concomitant]

REACTIONS (1)
  - SUICIDAL IDEATION [None]
